FAERS Safety Report 13084548 (Version 1)
Quarter: 2017Q1

REPORT INFORMATION
  Report Type: Spontaneous
  Country: US (occurrence: US)
  Receive Date: 20170103
  Receipt Date: 20170103
  Transmission Date: 20170428
  Serious: No
  Sender: FDA-Public Use
  Company Number: None

PATIENT
  Age: 70 Year
  Sex: Female
  Weight: 64 kg

DRUGS (20)
  1. PANADOL [Concomitant]
     Active Substance: ACETAMINOPHEN
  2. TRAMADOL-SR [Concomitant]
  3. MAG/CHELATE [Concomitant]
  4. MULTI VIT + MINS [Concomitant]
  5. VITAMIN C [Concomitant]
     Active Substance: ASCORBIC ACID
  6. ASPIRIN. [Concomitant]
     Active Substance: ASPIRIN
  7. ARIMIDEX [Concomitant]
     Active Substance: ANASTROZOLE
  8. TRAMADOL-IR [Concomitant]
  9. IBUPROFEN. [Concomitant]
     Active Substance: IBUPROFEN
  10. PROLIA [Concomitant]
     Active Substance: DENOSUMAB
  11. FISH OIL [Concomitant]
     Active Substance: FISH OIL
  12. PROBIOTIC [Concomitant]
     Active Substance: PROBIOTICS NOS
  13. VITAMIN B12 [Concomitant]
     Active Substance: CYANOCOBALAMIN
  14. ANASTROZOLE. [Suspect]
     Active Substance: ANASTROZOLE
     Indication: BREAST CANCER
     Dosage: ?          QUANTITY:1 TABLET(S);?
     Route: 048
     Dates: start: 20160430
  15. CIRCADIN SR [Concomitant]
  16. LYRICA [Concomitant]
     Active Substance: PREGABALIN
  17. CRESTOR [Concomitant]
     Active Substance: ROSUVASTATIN CALCIUM
  18. SOMAC [Concomitant]
     Active Substance: PANTOPRAZOLE SODIUM
  19. CALCIUM+D [Concomitant]
     Active Substance: CALCIUM\VITAMIN D
  20. ESSENTIAL GREENS [Concomitant]

REACTIONS (4)
  - Hair colour changes [None]
  - Skin discolouration [None]
  - Vitiligo [None]
  - Skin disorder [None]

NARRATIVE: CASE EVENT DATE: 20160701
